FAERS Safety Report 5394464-7 (Version None)
Quarter: 2007Q3

REPORT INFORMATION
  Report Type: 
  Country: None (occurrence: None)
  Receive Date: 20070723
  Receipt Date: 20070509
  Transmission Date: 20080115
  Serious: No
  Sender: FDA-Public Use
  Company Number: US-AMGEN-US218330

PATIENT
  Sex: Female
  Weight: 69 kg

DRUGS (9)
  1. VECTIBIX [Suspect]
     Indication: COLORECTAL CANCER
     Route: 042
     Dates: start: 20070403, end: 20070403
  2. CATAPRES [Concomitant]
     Route: 065
  3. TOPROL-XL [Concomitant]
     Route: 065
  4. PROTONIX [Concomitant]
     Route: 065
  5. LEVOTHROID [Concomitant]
     Route: 065
  6. ALDACTONE [Concomitant]
     Route: 065
  7. AUGMENTIN '125' [Concomitant]
     Route: 065
  8. VITAMIN CAP [Concomitant]
     Route: 065
  9. HERBAL PREPARATION [Concomitant]
     Route: 065

REACTIONS (2)
  - BRONCHOSPASM [None]
  - FLUSHING [None]
